FAERS Safety Report 5198708-6 (Version None)
Quarter: 2007Q1

REPORT INFORMATION
  Report Type: 
  Country: None (occurrence: None)
  Receive Date: 20070104
  Receipt Date: 20061221
  Transmission Date: 20070707
  Serious: Yes (Other)
  Sender: FDA-Public Use
  Company Number: US-ELI_LILLY_AND_COMPANY-US200610005204

PATIENT
  Age: 52 Year
  Sex: Male
  Weight: 116.55 kg

DRUGS (2)
  1. CYMBALTA [Suspect]
     Indication: DEPRESSION
     Dosage: 60 MG, UNK
     Dates: start: 20060113, end: 20061025
  2. ANTIINFLAMMATORY/ANTIRHEUMATIC NON-STEROIDS [Concomitant]

REACTIONS (1)
  - HYPERTENSION [None]
